FAERS Safety Report 24095476 (Version 5)
Quarter: 2024Q4

REPORT INFORMATION
  Report Type: Report from Study
  Country: IN (occurrence: IN)
  Receive Date: 20240716
  Receipt Date: 20241113
  Transmission Date: 20250115
  Serious: Yes (Death, Other)
  Sender: ASTELLAS
  Company Number: IN-ASTELLAS-2024US020147

PATIENT
  Age: 68 Year
  Sex: Female

DRUGS (2)
  1. GILTERITINIB [Suspect]
     Active Substance: GILTERITINIB
     Indication: Acute myeloid leukaemia
     Dosage: 40 MG, 3 TABLETS PER DAY
     Route: 048
     Dates: start: 20240523, end: 20240708
  2. GILTERITINIB [Suspect]
     Active Substance: GILTERITINIB
     Dosage: 40 MG, 3 TABLETS PER DAY
     Route: 048
     Dates: start: 20240719, end: 20240910

REACTIONS (2)
  - Pneumonitis [Recovered/Resolved]
  - Septic shock [Fatal]

NARRATIVE: CASE EVENT DATE: 20240708
